FAERS Safety Report 24764403 (Version 1)
Quarter: 2024Q4

REPORT INFORMATION
  Report Type: Spontaneous
  Country: US (occurrence: US)
  Receive Date: 20241223
  Receipt Date: 20241223
  Transmission Date: 20250114
  Serious: Yes (Other)
  Sender: JOHNSON AND JOHNSON
  Company Number: US-JNJFOC-20241237156

PATIENT
  Sex: Female

DRUGS (1)
  1. ELMIRON [Suspect]
     Active Substance: PENTOSAN POLYSULFATE SODIUM
     Indication: Cystitis interstitial
     Dosage: VARYING FREQUENCY
     Route: 048

REACTIONS (3)
  - Pigmentary maculopathy [Recovering/Resolving]
  - Dry age-related macular degeneration [Recovering/Resolving]
  - Off label use [Unknown]
